FAERS Safety Report 24458628 (Version 2)
Quarter: 2024Q4

REPORT INFORMATION
  Report Type: Spontaneous
  Country: US (occurrence: US)
  Receive Date: 20241018
  Receipt Date: 20241114
  Transmission Date: 20250115
  Serious: No
  Sender: DERMAVANT SCIENCES
  Company Number: US-Dermavant-001278

PATIENT
  Sex: Female

DRUGS (1)
  1. VTAMA [Suspect]
     Active Substance: TAPINAROF
     Indication: Psoriasis
     Route: 061

REACTIONS (5)
  - Application site pain [Not Recovered/Not Resolved]
  - Swelling face [Not Recovered/Not Resolved]
  - Application site pruritus [Not Recovered/Not Resolved]
  - Ocular hyperaemia [Not Recovered/Not Resolved]
  - Erythema [Not Recovered/Not Resolved]
